FAERS Safety Report 7609764-7 (Version None)
Quarter: 2011Q3

REPORT INFORMATION
  Report Type: 
  Country: None (occurrence: None)
  Receive Date: 20110714
  Receipt Date: 20110706
  Transmission Date: 20111222
  Serious: Yes (Other)
  Sender: FDA-Public Use
  Company Number: PHHY2011BR61104

PATIENT
  Sex: Female
  Weight: 66 kg

DRUGS (1)
  1. FEMARA [Suspect]
     Indication: BREAST CANCER
     Dosage: 1 DF, QD
     Route: 048

REACTIONS (5)
  - TACHYCARDIA [None]
  - COUGH [None]
  - HEADACHE [None]
  - BRONCHITIS [None]
  - BLOOD PRESSURE INCREASED [None]
